FAERS Safety Report 7262030-4 (Version None)
Quarter: 2011Q1

REPORT INFORMATION
  Report Type: 
  Country: None (occurrence: None)
  Receive Date: 20110130
  Receipt Date: 20101025
  Transmission Date: 20110831
  Serious: No
  Sender: FDA-Public Use
  Company Number: US-ABBOTT-10P-163-0681415-00

PATIENT
  Sex: Male
  Weight: 147.55 kg

DRUGS (3)
  1. UNKNOWN CHOLESTEROL MEDICATION [Concomitant]
     Indication: PRODUCT USED FOR UNKNOWN INDICATION
  2. IMITREX [Concomitant]
     Indication: MIGRAINE
  3. HUMIRA [Suspect]
     Indication: PSORIASIS
     Dates: start: 20100901

REACTIONS (3)
  - COUGH [None]
  - SINUSITIS [None]
  - VIRAL INFECTION [None]
